FAERS Safety Report 20649255 (Version 1)
Quarter: 2022Q1

REPORT INFORMATION
  Report Type: Spontaneous
  Country: US (occurrence: US)
  Receive Date: 20220329
  Receipt Date: 20220329
  Transmission Date: 20220424
  Serious: Yes (Hospitalization, Other)
  Sender: FDA-Public Use
  Company Number: US-PFIZER INC-202200435001

PATIENT
  Age: 70 Year
  Sex: Female
  Weight: 49.4 kg

DRUGS (20)
  1. AZITHROMYCIN [Suspect]
     Active Substance: AZITHROMYCIN
     Dosage: UNK
     Dates: start: 202107, end: 202111
  2. NUZYRA [Suspect]
     Active Substance: OMADACYCLINE
     Dosage: UNK
     Dates: start: 202108, end: 202111
  3. CLOFAZIMINE [Suspect]
     Active Substance: CLOFAZIMINE
     Dosage: UNK
     Dates: start: 2021, end: 202111
  4. CLOFAZIMINE [Suspect]
     Active Substance: CLOFAZIMINE
     Dosage: UNK
     Dates: start: 202112
  5. IMIPENEM [Suspect]
     Active Substance: IMIPENEM
     Dosage: UNK
     Dates: start: 202110, end: 202110
  6. ACETAMINOPHEN [Concomitant]
     Active Substance: ACETAMINOPHEN
     Dosage: UNK
  7. DIAZEPAM [Concomitant]
     Active Substance: DIAZEPAM
     Dosage: UNK, AS NEEDED
  8. FERROUS SULFATE [Concomitant]
     Active Substance: FERROUS SULFATE
     Dosage: UNK
  9. LACOSAMIDE [Concomitant]
     Active Substance: LACOSAMIDE
     Dosage: 50 MG
  10. LEVETIRACETAM [Concomitant]
     Active Substance: LEVETIRACETAM
     Dosage: 250 MG, 1X/DAY
  11. LEVOTHYROXINE [Concomitant]
     Active Substance: LEVOTHYROXINE
     Dosage: 75 UG
  12. SEVELAMER [Concomitant]
     Active Substance: SEVELAMER
     Dosage: UNK
  13. FOLIC ACID [Concomitant]
     Active Substance: FOLIC ACID
     Dosage: UNK
  14. MULTIVITAMIN [ASCORBIC ACID;COLECALCIFEROL;DEXPANTHENOL;NICOTINAMIDE;P [Concomitant]
     Dosage: UNK
  15. CEFOXITIN [Concomitant]
     Active Substance: CEFOXITIN SODIUM
     Dosage: UNK
  16. CEFOXITIN [Concomitant]
     Active Substance: CEFOXITIN SODIUM
     Dosage: UNK
     Dates: start: 202112
  17. LINEZOLID [Concomitant]
     Active Substance: LINEZOLID
     Dosage: UNK
     Dates: start: 202107, end: 202108
  18. LINEZOLID [Concomitant]
     Active Substance: LINEZOLID
     Dosage: UNK
     Dates: start: 202112
  19. AMIKACIN [Concomitant]
     Active Substance: AMIKACIN
     Dosage: UNK
     Dates: start: 202107, end: 202108
  20. TIGECYCLINE [Concomitant]
     Active Substance: TIGECYCLINE
     Dosage: UNK
     Dates: start: 202107, end: 202108

REACTIONS (4)
  - Seizure [Unknown]
  - Blood creatinine increased [Unknown]
  - Aspartate aminotransferase increased [Unknown]
  - Alanine aminotransferase increased [Unknown]

NARRATIVE: CASE EVENT DATE: 20211001
